FAERS Safety Report 13990385 (Version 1)
Quarter: 2017Q3

REPORT INFORMATION
  Report Type: Spontaneous
  Country: GB (occurrence: GB)
  Receive Date: 20170920
  Receipt Date: 20170920
  Transmission Date: 20171128
  Serious: Yes (Other)
  Sender: FDA-Public Use
  Company Number: GB-ALLERGAN-1753018US

PATIENT
  Age: 63 Year
  Sex: Female
  Weight: 63.5 kg

DRUGS (2)
  1. RISEDRONATE SODIUM - BP [Suspect]
     Active Substance: RISEDRONATE SODIUM
     Indication: OSTEOPOROSIS
     Dosage: 35 MG, UNK
     Route: 048
     Dates: start: 20170726
  2. EZETROL [Concomitant]
     Active Substance: EZETIMIBE
     Indication: PRODUCT USED FOR UNKNOWN INDICATION
     Dosage: 10 MG, UNKNOWN
     Route: 065

REACTIONS (4)
  - Pain in jaw [Unknown]
  - Swelling face [Unknown]
  - Blood urine present [Unknown]
  - Arthralgia [Unknown]

NARRATIVE: CASE EVENT DATE: 20170729
